FAERS Safety Report 9126836 (Version 1)
Quarter: 2013Q1

REPORT INFORMATION
  Report Type: Spontaneous
  Country: GB (occurrence: GB)
  Receive Date: 20130228
  Receipt Date: 20130228
  Transmission Date: 20140127
  Serious: Yes (Other)
  Sender: FDA-Public Use
  Company Number: GB-JNJFOC-20130214698

PATIENT
  Age: 21 Year
  Sex: Male
  Weight: 83 kg

DRUGS (6)
  1. NICORETTE [Suspect]
     Route: 062
  2. NICORETTE [Suspect]
     Indication: PRODUCT USED FOR UNKNOWN INDICATION
     Route: 062
     Dates: start: 20130211
  3. NICORETTE [Suspect]
     Route: 065
  4. NICORETTE [Suspect]
     Indication: PRODUCT USED FOR UNKNOWN INDICATION
     Route: 065
     Dates: start: 20121024, end: 20121114
  5. NICOTINE [Concomitant]
     Route: 065
     Dates: start: 20121024, end: 20121121
  6. DOXYCYCLINE [Concomitant]
     Route: 065
     Dates: start: 20121112, end: 20121119

REACTIONS (8)
  - Vision blurred [Unknown]
  - Headache [Unknown]
  - Nausea [Unknown]
  - Palpitations [Unknown]
  - Retching [Unknown]
  - Tremor [Unknown]
  - Paraesthesia [Unknown]
  - Vomiting [Unknown]
